FAERS Safety Report 5615784-4 (Version None)
Quarter: 2008Q1

REPORT INFORMATION
  Report Type: 
  Country: None (occurrence: None)
  Receive Date: 20080206
  Receipt Date: 20080124
  Transmission Date: 20080703
  Serious: Yes (Other)
  Sender: FDA-Public Use
  Company Number: US-RANBAXY-2008US-12830

PATIENT

DRUGS (15)
  1. CLINDAMYCIN HYDROCHLORIDE [Suspect]
     Indication: DENTAL OPERATION
     Dosage: 300 MG, QID
     Dates: start: 20080123
  2. AMLODEPINE [Concomitant]
     Dosage: 5 MG, QD
  3. OLONIDINE [Concomitant]
  4. HYDROCHLOTHIAZIDE [Concomitant]
     Dosage: 25 MG, QD
  5. PRODOLEC [Concomitant]
     Dosage: 20 MG, QD
  6. CLONOZETAN [Concomitant]
  7. NASONEX [Concomitant]
  8. AMBIEN [Concomitant]
     Dosage: 10 MG, UNK
  9. PIAZOLAN [Suspect]
     Dosage: 1 MG, UNK
  10. PREDINISONE [Concomitant]
     Dosage: 10 MG, UNK
  11. ZOPENEX [Concomitant]
     Dosage: 1.25 MG, UNK
  12. AOZAC [Concomitant]
     Dosage: 20 MG, QD
  13. NORCO [Concomitant]
  14. ASACOL [Concomitant]
     Dosage: 400 MG, BID
  15. OXYCODON [Concomitant]

REACTIONS (5)
  - ARTHRALGIA [None]
  - CHILLS [None]
  - HYPERHIDROSIS [None]
  - PAIN [None]
  - PARALYSIS [None]
